FAERS Safety Report 10786908 (Version 1)
Quarter: 2015Q1

REPORT INFORMATION
  Report Type: Spontaneous
  Country: IT (occurrence: CA)
  Receive Date: 20150211
  Receipt Date: 20150211
  Transmission Date: 20150721
  Serious: Yes (Other)
  Sender: FDA-Public Use
  Company Number: CA-FRI-1000074194

PATIENT
  Age: 67 Year
  Sex: Male

DRUGS (8)
  1. MONUROL [Suspect]
     Active Substance: FOSFOMYCIN TROMETHAMINE
     Indication: ANTIBIOTIC PROPHYLAXIS
     Dosage: 3 GRAM
  2. ASA [Concomitant]
     Active Substance: ASPIRIN
  3. ATORVASTATIN CALCIUM. [Concomitant]
     Active Substance: ATORVASTATIN CALCIUM
  4. TAMSULOSIN SANDOZ [Concomitant]
     Active Substance: TAMSULOSIN
  5. STIEPROX [Concomitant]
  6. TRAZODONE [Concomitant]
     Active Substance: TRAZODONE HYDROCHLORIDE
  7. VENLAFAXINE XR [Concomitant]
     Active Substance: VENLAFAXINE HYDROCHLORIDE
  8. VIMOVO [Concomitant]
     Active Substance: ESOMEPRAZOLE MAGNESIUM\NAPROXEN

REACTIONS (5)
  - Insomnia [Unknown]
  - Diarrhoea [Unknown]
  - Hypervigilance [Unknown]
  - Palpitations [Unknown]
  - Nausea [Unknown]
